FAERS Safety Report 8869385 (Version 1)
Quarter: 2012Q4

REPORT INFORMATION
  Report Type: 
  Country: US (occurrence: US)
  Receive Date: 20121026
  Receipt Date: 20121026
  Transmission Date: 20130627
  Serious: No
  Sender: FDA-Public Use
  Company Number: US-AMGEN-USASP2012042268

PATIENT
  Age: 62 Year
  Sex: Female

DRUGS (4)
  1. ENBREL [Suspect]
     Indication: RHEUMATOID ARTHRITIS
     Dosage: 50 mg, qwk
     Dates: start: 20120630
  2. ENBREL [Suspect]
     Indication: SJOGREN^S SYNDROME
  3. ENBREL [Suspect]
     Indication: VASCULITIS
  4. ENBREL [Suspect]
     Indication: POLYMYALGIA RHEUMATICA

REACTIONS (1)
  - Drug effect incomplete [Not Recovered/Not Resolved]
